FAERS Safety Report 8216825-0 (Version None)
Quarter: 2012Q1

REPORT INFORMATION
  Report Type: 
  Country: None (occurrence: None)
  Receive Date: 20120316
  Receipt Date: 20120305
  Transmission Date: 20120608
  Serious: No
  Sender: FDA-Public Use
  Company Number: US-B.I. PHARMACEUTICALS,INC./RIDGEFIELD-2012-BP-02061BP

PATIENT
  Age: 71 Year
  Sex: Female

DRUGS (6)
  1. DIOVAN [Concomitant]
     Indication: CARDIAC FAILURE CONGESTIVE
     Dates: start: 20030101
  2. TOPROL-XL [Concomitant]
  3. LASIX [Concomitant]
     Indication: DIURETIC THERAPY
     Dates: start: 20100301
  4. PRADAXA [Suspect]
     Indication: ATRIAL FIBRILLATION
     Dosage: 300 MG
     Route: 048
     Dates: start: 20110310, end: 20110413
  5. ASPIRIN [Concomitant]
     Indication: THROMBOSIS PROPHYLAXIS
     Dates: start: 20110401
  6. ALDACTONE [Concomitant]
     Indication: CARDIAC FAILURE CONGESTIVE
     Route: 048
     Dates: start: 20050101

REACTIONS (1)
  - GOUT [None]
